FAERS Safety Report 6936300-0 (Version None)
Quarter: 2010Q3

REPORT INFORMATION
  Report Type: 
  Country: None (occurrence: None)
  Receive Date: 20100823
  Receipt Date: 20100812
  Transmission Date: 20110219
  Serious: Yes (Other)
  Sender: FDA-Public Use
  Company Number: IT-PFIZER INC-2010098493

PATIENT
  Age: 42 Year
  Sex: Female

DRUGS (1)
  1. SERTRALINE HYDROCHLORIDE [Suspect]
     Indication: DEPRESSIVE SYMPTOM
     Dosage: 75MG DAILY

REACTIONS (4)
  - MAJOR DEPRESSION [None]
  - NAUSEA [None]
  - SEDATION [None]
  - SJOGREN'S SYNDROME [None]
